FAERS Safety Report 5234895-9 (Version None)
Quarter: 2007Q1

REPORT INFORMATION
  Report Type: 
  Country: None (occurrence: None)
  Receive Date: 20070209
  Receipt Date: 20070131
  Transmission Date: 20070707
  Serious: Yes (Hospitalization, Other)
  Sender: FDA-Public Use
  Company Number: PH-PFIZER INC-2007008633

PATIENT
  Age: 54 Year
  Sex: Female

DRUGS (1)
  1. NORVASC [Suspect]
     Indication: HYPERTENSION
     Dates: start: 20010101, end: 20070201

REACTIONS (3)
  - ARTIFICIAL CROWN PROCEDURE [None]
  - GINGIVAL DISORDER [None]
  - TOOTH EXTRACTION [None]
